FAERS Safety Report 7630465-3 (Version None)
Quarter: 2011Q3

REPORT INFORMATION
  Report Type: 
  Country: None (occurrence: None)
  Receive Date: 20110722
  Receipt Date: 20110713
  Transmission Date: 20111222
  Serious: Yes (Other)
  Sender: FDA-Public Use
  Company Number: JP-JNJFOC-20110706546

PATIENT
  Age: 35 Year
  Sex: Male

DRUGS (3)
  1. REMICADE [Suspect]
     Route: 042
     Dates: start: 20110111
  2. REMICADE [Suspect]
     Indication: CROHN'S DISEASE
     Route: 042
     Dates: start: 20101211
  3. REMICADE [Suspect]
     Route: 042
     Dates: start: 20101125

REACTIONS (1)
  - TUBERCULOSIS [None]
